FAERS Safety Report 5043182-3 (Version None)
Quarter: 2006Q2

REPORT INFORMATION
  Report Type: 
  Country: None (occurrence: None)
  Receive Date: 20060628
  Receipt Date: 20060620
  Transmission Date: 20061013
  Serious: No
  Sender: FDA-Public Use
  Company Number: 007781

PATIENT
  Age: 34 Year
  Sex: Female
  Weight: 92.5 kg

DRUGS (2)
  1. PLAN B [Suspect]
     Indication: CONTRACEPTION
     Dosage: 1 TABLET, ORAL
     Route: 048
     Dates: start: 20060608
  2. ANALGESICS [Concomitant]

REACTIONS (2)
  - GALLBLADDER DISORDER [None]
  - MENSTRUATION IRREGULAR [None]
